FAERS Safety Report 5642738-4 (Version None)
Quarter: 2008Q1

REPORT INFORMATION
  Report Type: 
  Country: None (occurrence: None)
  Receive Date: 20080227
  Receipt Date: 20080227
  Transmission Date: 20080703
  Serious: Yes (Hospitalization)
  Sender: FDA-Public Use
  Company Number: None

PATIENT
  Sex: Male
  Weight: 78.0187 kg

DRUGS (12)
  1. ATENOLOL [Suspect]
     Indication: CARDIAC DISORDER
     Dosage: CARDIAC MEDS (THERAPY DATES: PRIOR TO ADMISSION)
     Route: 048
  2. CARDIZEM [Suspect]
     Indication: CARDIAC DISORDER
     Dosage: CARDIAC MEDS (THERAPY DATES: PRIOR TO ADMISSION)
     Route: 048
  3. AMIODARONE HCL [Suspect]
     Indication: CARDIAC DISORDER
     Dosage: CARDIAC MEDS (THERAPY DATES: PRIOR TO ADMISSION)
     Route: 048
  4. ASPIRIN [Concomitant]
  5. TERAZOSIN [Concomitant]
  6. ALLOPURINOL [Concomitant]
  7. GABAPENTIN [Concomitant]
  8. ZOCOR [Concomitant]
  9. FOLIC ACID [Concomitant]
  10. FOSAMAX [Concomitant]
  11. NAMENDA [Concomitant]
  12. ULTRAM [Concomitant]

REACTIONS (3)
  - BRADYCARDIA [None]
  - HYPOTENSION [None]
  - LOSS OF CONSCIOUSNESS [None]
